FAERS Safety Report 8793834 (Version 2)
Quarter: 2012Q4

REPORT INFORMATION
  Report Type: Report from Study
  Country: JP (occurrence: JP)
  Receive Date: 20120918
  Receipt Date: 20121029
  Transmission Date: 20130627
  Serious: Yes (Other)
  Sender: FDA-Public Use
  Company Number: JP-009507513-1209JPN002484

PATIENT
  Age: 65 Year
  Sex: Male
  Weight: 63 kg

DRUGS (10)
  1. PEGINTRON [Suspect]
     Indication: HEPATITIS C
     Dosage: 100 Microgram, UNK
     Route: 058
     Dates: start: 20120702
  2. REBETOL [Suspect]
     Indication: HEPATITIS C
     Dosage: 800 mg, qd
     Route: 048
     Dates: start: 20120702, end: 20120706
  3. REBETOL [Suspect]
     Dosage: 400 mg, qd
     Route: 048
     Dates: start: 20120707, end: 20120708
  4. REBETOL [Suspect]
     Dosage: 600 mg, qd
     Route: 048
     Dates: start: 20120709, end: 20120713
  5. REBETOL [Suspect]
     Dosage: 800 mg, qd
     Route: 048
     Dates: start: 20120714
  6. TELAVIC [Suspect]
     Indication: HEPATITIS C
     Dosage: 2250 mg, qd
     Route: 048
     Dates: start: 20120702, end: 20120705
  7. TELAVIC [Suspect]
     Dosage: 750 mg, UNK
     Route: 048
     Dates: start: 20120706, end: 20120716
  8. TELAVIC [Suspect]
     Dosage: 1500 mg, qd
     Route: 048
     Dates: start: 20120717, end: 20120813
  9. TALION (BEPOTASTINE BESYLATE) [Concomitant]
     Indication: PROPHYLAXIS
     Dosage: 20 mg, UNK
     Route: 048
     Dates: start: 20120702
  10. [COMPOSITION UNSPECIFIED] [Concomitant]
     Indication: PROPHYLAXIS
     Dosage: 7.5 g, qd
     Route: 048
     Dates: start: 20120702, end: 20120909

REACTIONS (2)
  - Hyperuricaemia [Recovered/Resolved]
  - Retinopathy [Not Recovered/Not Resolved]
